FAERS Safety Report 4904931-5 (Version None)
Quarter: 2006Q1

REPORT INFORMATION
  Report Type: 
  Country: None (occurrence: None)
  Receive Date: 20060208
  Receipt Date: 20051024
  Transmission Date: 20060701
  Serious: No
  Sender: FDA-Public Use
  Company Number: US-GLAXOSMITHKLINE-A0579361A

PATIENT
  Age: 56 Year
  Sex: Male

DRUGS (3)
  1. PAXIL [Suspect]
     Indication: DEPRESSION
     Dosage: 40MG PER DAY
     Route: 048
     Dates: start: 19990101, end: 19990101
  2. PAXIL CR [Suspect]
     Indication: DEPRESSION
     Route: 048
  3. NO CONCURRENT MEDICATION [Concomitant]

REACTIONS (1)
  - DRUG INEFFECTIVE [None]
